FAERS Safety Report 19462784 (Version 2)
Quarter: 2021Q2

REPORT INFORMATION
  Report Type: Report from Study
  Country: KR (occurrence: KR)
  Receive Date: 20210625
  Receipt Date: 20210630
  Transmission Date: 20210717
  Serious: Yes (Hospitalization)
  Sender: FDA-Public Use
  Company Number: KR-JNJFOC-20210647490

PATIENT
  Age: 64 Year
  Sex: Female
  Weight: 53.7 kg

DRUGS (2)
  1. LAZERTINIB. [Suspect]
     Active Substance: LAZERTINIB
     Indication: NON-SMALL CELL LUNG CANCER
     Route: 048
     Dates: start: 20210330, end: 20210524
  2. AMIVANTAMAB. [Suspect]
     Active Substance: AMIVANTAMAB
     Indication: NON-SMALL CELL LUNG CANCER
     Route: 065
     Dates: start: 20210330, end: 20210524

REACTIONS (1)
  - Pustule [Not Recovered/Not Resolved]

NARRATIVE: CASE EVENT DATE: 20210524
